FAERS Safety Report 24086099 (Version 2)
Quarter: 2024Q3

REPORT INFORMATION
  Report Type: Spontaneous
  Country: GB (occurrence: GB)
  Receive Date: 20240712
  Receipt Date: 20240717
  Transmission Date: 20241017
  Serious: Yes (Disabling, Other)
  Sender: BAYER
  Company Number: None

PATIENT
  Age: 72 Year
  Sex: Female
  Weight: 70 kg

DRUGS (1)
  1. CIPROFLOXACIN [Suspect]
     Active Substance: CIPROFLOXACIN
     Indication: Urinary tract infection
     Dosage: 500 MG, BID
     Route: 048
     Dates: start: 20231208, end: 20231215

REACTIONS (13)
  - Medication error [Unknown]
  - Myalgia [Not Recovered/Not Resolved]
  - Arthralgia [Not Recovered/Not Resolved]
  - Joint stiffness [Not Recovered/Not Resolved]
  - Fatigue [Recovering/Resolving]
  - Pain in extremity [Not Recovered/Not Resolved]
  - Insomnia [Not Recovered/Not Resolved]
  - Bursitis [Not Recovered/Not Resolved]
  - Joint swelling [Not Recovered/Not Resolved]
  - Arthritis [None]
  - Tendon disorder [None]
  - Impaired work ability [None]
  - Asthenia [None]

NARRATIVE: CASE EVENT DATE: 20231213
